FAERS Safety Report 9286401 (Version 1)
Quarter: 2013Q2

REPORT INFORMATION
  Report Type: Spontaneous
  Country: US (occurrence: None)
  Receive Date: 20130510
  Receipt Date: 20130510
  Transmission Date: 20140414
  Serious: Yes (Hospitalization)
  Sender: FDA-Public Use
  Company Number: None

PATIENT
  Age: 75 Year
  Sex: Male
  Weight: 73.1 kg

DRUGS (11)
  1. YERVOY [Suspect]
     Indication: INVESTIGATION
     Dosage: Q3 WEEKS
     Route: 042
     Dates: start: 20121220, end: 20130220
  2. SYLATRON [Suspect]
     Indication: INVESTIGATION
     Route: 058
     Dates: start: 20121220, end: 20130312
  3. PLAVIX [Concomitant]
  4. VERAPAMIL [Concomitant]
  5. METOPROLOL [Concomitant]
  6. CREATOR [Concomitant]
  7. IMDUR [Concomitant]
  8. PREDNISONE [Concomitant]
  9. BENZONATATE [Concomitant]
  10. IMODIUM [Concomitant]
  11. PHERNERGAN [Concomitant]

REACTIONS (4)
  - Dyspnoea [None]
  - Vomiting [None]
  - Diarrhoea [None]
  - Malignant neoplasm progression [None]
